FAERS Safety Report 11110102 (Version 1)
Quarter: 2015Q2

REPORT INFORMATION
  Report Type: Spontaneous
  Country: US (occurrence: US)
  Receive Date: 20150513
  Receipt Date: 20150513
  Transmission Date: 20150821
  Serious: Yes (Other)
  Sender: FDA-Public Use
  Company Number: US-PFIZER INC-2015138956

PATIENT
  Age: 37 Year
  Sex: Male

DRUGS (2)
  1. CHANTIX [Suspect]
     Active Substance: VARENICLINE TARTRATE
     Indication: SMOKING CESSATION THERAPY
     Dosage: UNK
     Dates: start: 20150420
  2. CHANTIX [Suspect]
     Active Substance: VARENICLINE TARTRATE
     Dosage: 1 MG, UNK
     Dates: end: 20150427

REACTIONS (18)
  - Arthralgia [Recovered/Resolved]
  - Flatulence [Recovered/Resolved]
  - VIIth nerve paralysis [Recovered/Resolved]
  - Euphoric mood [Unknown]
  - Paranoia [Recovered/Resolved]
  - Agitation [Recovered/Resolved]
  - Chest pain [Recovered/Resolved]
  - Dyspnoea [Recovered/Resolved]
  - Depression [Recovered/Resolved]
  - Anger [Recovering/Resolving]
  - Suicidal ideation [Recovered/Resolved]
  - Hallucination [Recovered/Resolved]
  - Confusional state [Recovered/Resolved]
  - Nausea [Recovered/Resolved]
  - Asthenia [Recovered/Resolved]
  - Anxiety [Recovering/Resolving]
  - Paraesthesia [Recovered/Resolved]
  - Feeling abnormal [Recovered/Resolved]

NARRATIVE: CASE EVENT DATE: 20150420
